FAERS Safety Report 20825323 (Version 1)
Quarter: 2022Q2

REPORT INFORMATION
  Report Type: Spontaneous
  Country: DE (occurrence: DE)
  Receive Date: 20220513
  Receipt Date: 20220513
  Transmission Date: 20220721
  Serious: Yes (Other)
  Sender: FDA-Public Use
  Company Number: DE-drreddys-LIT/GER/22/0149904

PATIENT
  Age: 38 Year
  Sex: Female

DRUGS (4)
  1. CLOZAPINE [Suspect]
     Active Substance: CLOZAPINE
     Indication: Schizophrenia
     Dosage: DOSES UP TO 200 MG/24 H,
  2. OLANZAPINE [Suspect]
     Active Substance: OLANZAPINE
     Indication: Schizophrenia
  3. AMISULPRIDE [Suspect]
     Active Substance: AMISULPRIDE
     Indication: Schizophrenia
  4. BENPERIDOL [Suspect]
     Active Substance: BENPERIDOL
     Indication: Schizophrenia
     Dosage: BENPERIDOL (2-0-3 MG)

REACTIONS (3)
  - Memory impairment [Unknown]
  - Extrapyramidal disorder [Unknown]
  - Drug ineffective [Unknown]
